FAERS Safety Report 20623360 (Version 1)
Quarter: 2022Q1

REPORT INFORMATION
  Report Type: Spontaneous
  Country: US (occurrence: US)
  Receive Date: 20220322
  Receipt Date: 20220322
  Transmission Date: 20220424
  Serious: No
  Sender: FDA-Public Use
  Company Number: US-TEVA-2022-US-2010955

PATIENT
  Age: 65 Year
  Sex: Male

DRUGS (4)
  1. CLONAZEPAM [Suspect]
     Active Substance: CLONAZEPAM
     Indication: Panic disorder
     Dosage: 4 MILLIGRAM DAILY;
     Route: 065
     Dates: start: 1996
  2. CLONAZEPAM [Suspect]
     Active Substance: CLONAZEPAM
     Dosage: 6 MILLIGRAM DAILY;
     Route: 065
  3. CLONAZEPAM [Suspect]
     Active Substance: CLONAZEPAM
     Dosage: 2 MG IN THE MORNING, 1.5 MG MID-DAY, AND 2 MG AS AN EVENING DOSE
     Route: 065
  4. LORAZEPAM [Concomitant]
     Active Substance: LORAZEPAM

REACTIONS (2)
  - Laboratory test abnormal [Unknown]
  - Drug ineffective [Unknown]
